FAERS Safety Report 5743275-9 (Version None)
Quarter: 2008Q2

REPORT INFORMATION
  Report Type: 
  Country: None (occurrence: None)
  Receive Date: 20080519
  Receipt Date: 20080509
  Transmission Date: 20081010
  Serious: Yes (Other)
  Sender: FDA-Public Use
  Company Number: JP-PFIZER INC-2008041021

PATIENT
  Age: 55 Year
  Sex: Female

DRUGS (1)
  1. NASANYL [Suspect]
     Route: 045

REACTIONS (2)
  - ERYTHEMA [None]
  - SWELLING FACE [None]
